FAERS Safety Report 8102332 (Version 3)
Quarter: 2012Q4

REPORT INFORMATION
  Report Type: 
  Country: US (occurrence: US)
  Receive Date: 20110823
  Receipt Date: 20121024
  Transmission Date: 20130627
  Serious: Yes (Hospitalization)
  Sender: FDA-Public Use
  Company Number: US-BAYER-2011-075667

PATIENT
  Age: 29 Year
  Sex: Female

DRUGS (9)
  1. YAZ [Suspect]
     Dosage: UNK
     Route: 048
  2. YASMIN [Suspect]
     Route: 048
  3. LOMOTIL [ATROPINE SULFATE,DIPHENOXYLATE HYDROCHLORIDE] [Concomitant]
     Dosage: UNK, PRN
  4. XANAX [Concomitant]
     Dosage: 0.5 mg, PRN
  5. IBUPROFEN [Concomitant]
     Dosage: 600 mg, UNK
  6. FOLIC ACID [Concomitant]
  7. VITAMIN B12 [Concomitant]
  8. DILANTIN [Concomitant]
     Dosage: 300 mg, daily
  9. ATIVAN [Concomitant]

REACTIONS (1)
  - Deep vein thrombosis [None]
